FAERS Safety Report 5054635-6 (Version None)
Quarter: 2006Q3

REPORT INFORMATION
  Report Type: 
  Country: None (occurrence: None)
  Receive Date: 20060719
  Receipt Date: 20060711
  Transmission Date: 20061208
  Serious: Yes (Hospitalization)
  Sender: FDA-Public Use
  Company Number: PHBS2006BE10456

PATIENT
  Age: 42 Year
  Sex: Male

DRUGS (6)
  1. LAMISIL [Suspect]
     Indication: NAIL TINEA
     Dosage: 250 MG/D
     Route: 048
     Dates: start: 20060530
  2. TEGRETOL [Suspect]
     Indication: EPILEPSY
     Dosage: 400 MG, BID
  3. PHENYTOIN SODIUM CAP [Concomitant]
     Dosage: 100 MG, QID
  4. LYRICA [Concomitant]
     Dosage: 300 MG, BID
  5. TOPAMAX [Concomitant]
     Dosage: 150 MG/D
  6. REMERGON [Concomitant]
     Dosage: 30 MG/D

REACTIONS (6)
  - EPILEPSY [None]
  - FACE INJURY [None]
  - FALL [None]
  - JAW FRACTURE [None]
  - SKIN LESION [None]
  - SUTURE INSERTION [None]
